FAERS Safety Report 4804222-7 (Version None)
Quarter: 2005Q4

REPORT INFORMATION
  Report Type: 
  Country: None (occurrence: None)
  Receive Date: 20051017
  Receipt Date: 20051003
  Transmission Date: 20060501
  Serious: Yes (Death)
  Sender: FDA-Public Use
  Company Number: B0395880A

PATIENT
  Age: 88 Year
  Sex: 0

DRUGS (1)
  1. LANOXIN [Suspect]
     Indication: DRUG USE FOR UNKNOWN INDICATION
     Dosage: ORAL
     Route: 048

REACTIONS (2)
  - CARDIOACTIVE DRUG LEVEL ABOVE THERAPEUTIC [None]
  - MEDICATION ERROR [None]
